FAERS Safety Report 25272434 (Version 2)
Quarter: 2025Q3

REPORT INFORMATION
  Report Type: Report from Study
  Country: US (occurrence: US)
  Receive Date: 20250506
  Receipt Date: 20250926
  Transmission Date: 20251021
  Serious: No
  Sender: SUNOVION
  Company Number: US-SMPA-2025SPA004275AA

PATIENT
  Age: 73 Year
  Sex: Male

DRUGS (2)
  1. ORGOVYX [Suspect]
     Active Substance: RELUGOLIX
     Indication: Prostate cancer
     Route: 048
  2. ORGOVYX [Suspect]
     Active Substance: RELUGOLIX
     Dosage: 120 MG, QD...STARTED WITH BIOLOGICS
     Route: 048
     Dates: start: 20250122

REACTIONS (2)
  - Dyspnoea [Unknown]
  - Fatigue [Unknown]
